FAERS Safety Report 14416504 (Version 4)
Quarter: 2018Q1

REPORT INFORMATION
  Report Type: Spontaneous
  Country: FR (occurrence: FR)
  Receive Date: 20180122
  Receipt Date: 20180323
  Transmission Date: 20180509
  Serious: Yes (Other)
  Sender: FDA-Public Use
  Company Number: FR-AUROBINDO-AUR-APL-2018-002434

PATIENT
  Age: 78 Year
  Sex: Male

DRUGS (27)
  1. CLOZAPINE. [Interacting]
     Active Substance: CLOZAPINE
     Indication: ABNORMAL BEHAVIOUR
     Dosage: UNK
     Route: 065
  2. GOSERELIN [Interacting]
     Active Substance: GOSERELIN
     Indication: PROSTATE CANCER
     Dosage: ()
     Route: 065
  3. ALLOPURINOL. [Suspect]
     Active Substance: ALLOPURINOL
     Indication: PRODUCT USED FOR UNKNOWN INDICATION
     Dosage: UNK
     Route: 065
  4. ALLOPURINOL. [Interacting]
     Active Substance: ALLOPURINOL
     Dosage: ()
     Route: 065
  5. ASPIRIN                            /00002701/ [Concomitant]
     Active Substance: ASPIRIN
     Indication: PRODUCT USED FOR UNKNOWN INDICATION
     Route: 065
  6. BISOPROLOL [Concomitant]
     Active Substance: BISOPROLOL
     Indication: PRODUCT USED FOR UNKNOWN INDICATION
     Route: 065
  7. ACETYLSALICYLIC ACID [Concomitant]
     Active Substance: ASPIRIN
     Indication: PRODUCT USED FOR UNKNOWN INDICATION
     Dosage: ()
     Route: 065
  8. TRAMADOL. [Concomitant]
     Active Substance: TRAMADOL
     Indication: PRODUCT USED FOR UNKNOWN INDICATION
     Route: 065
  9. GOSERELIN [Interacting]
     Active Substance: GOSERELIN
     Dosage: ()
     Route: 065
  10. GOSERELIN [Interacting]
     Active Substance: GOSERELIN
     Dosage: ()
     Route: 065
  11. GOSERELIN [Interacting]
     Active Substance: GOSERELIN
     Dosage: ()
  12. TRAZODONE [Suspect]
     Active Substance: TRAZODONE HYDROCHLORIDE
     Indication: ABNORMAL BEHAVIOUR
     Route: 065
  13. TRAZODONE [Suspect]
     Active Substance: TRAZODONE HYDROCHLORIDE
     Dosage: ()
     Route: 065
  14. BISOPROLOL [Concomitant]
     Active Substance: BISOPROLOL
     Dosage: ()
     Route: 065
  15. BICALUTAMIDE. [Interacting]
     Active Substance: BICALUTAMIDE
     Indication: PROSTATE CANCER
     Dosage: UNK
     Route: 065
  16. BICALUTAMIDE. [Interacting]
     Active Substance: BICALUTAMIDE
     Dosage: ()
     Route: 065
  17. BICALUTAMIDE. [Interacting]
     Active Substance: BICALUTAMIDE
     Dosage: ()
  18. GOSERELIN [Interacting]
     Active Substance: GOSERELIN
     Indication: ANDROGEN THERAPY
     Dosage: UNK
     Route: 065
  19. CLOZAPINE. [Interacting]
     Active Substance: CLOZAPINE
     Indication: DEMENTIA ALZHEIMER^S TYPE
     Dosage: INITIAL DOSAGE UNKNOWN; HOWEVER, LATER RECEIVED 25MG/DAY ()
     Route: 065
  20. CLOZAPINE. [Interacting]
     Active Substance: CLOZAPINE
     Indication: ABNORMAL BEHAVIOUR
     Dosage: \
  21. CLOZAPINE. [Interacting]
     Active Substance: CLOZAPINE
     Dosage: INCREASE IN THE DOSAGE UP TO 25 MG/D ()
  22. ACETYLSALICYLIC ACID [Concomitant]
     Active Substance: ASPIRIN
     Dosage: ()
     Route: 065
  23. GOSERELIN [Interacting]
     Active Substance: GOSERELIN
     Dosage: ()
     Route: 065
  24. ATORVASTATIN [Concomitant]
     Active Substance: ATORVASTATIN
     Indication: PRODUCT USED FOR UNKNOWN INDICATION
     Route: 065
  25. ATORVASTATIN [Concomitant]
     Active Substance: ATORVASTATIN
     Dosage: ()
     Route: 065
  26. ALLOPURINOL. [Interacting]
     Active Substance: ALLOPURINOL
     Dosage: ()
  27. GOSERELIN [Interacting]
     Active Substance: GOSERELIN
     Dosage: ()
     Route: 065

REACTIONS (2)
  - Drug interaction [Recovered/Resolved]
  - Electrocardiogram QT prolonged [Recovered/Resolved]
